FAERS Safety Report 6543324-4 (Version None)
Quarter: 2010Q1

REPORT INFORMATION
  Report Type: 
  Country: None (occurrence: None)
  Receive Date: 20100120
  Receipt Date: 20100113
  Transmission Date: 20100710
  Serious: Yes (Hospitalization)
  Sender: FDA-Public Use
  Company Number: JP-ROCHE-675872

PATIENT
  Sex: Male
  Weight: 65 kg

DRUGS (15)
  1. VALGANCICLOVIR HCL [Suspect]
     Indication: CYTOMEGALOVIRUS ENTEROCOLITIS
     Dosage: INITIAL TREATMENT
     Route: 048
     Dates: start: 20080901, end: 20080903
  2. VALGANCICLOVIR HCL [Suspect]
     Dosage: INITIAL TREATMENT
     Route: 048
     Dates: start: 20080924, end: 20080928
  3. VALGANCICLOVIR HCL [Suspect]
     Dosage: INITIAL TREATMENT
     Route: 048
     Dates: start: 20080929, end: 20081030
  4. VALGANCICLOVIR HCL [Suspect]
     Dosage: MAINTENANCE THERAPY
     Route: 048
     Dates: start: 20081031, end: 20090225
  5. VALGANCICLOVIR HCL [Suspect]
     Dosage: MAINTENANCE THERAPY
     Route: 048
     Dates: start: 20090304, end: 20090325
  6. KALETRA [Suspect]
     Indication: HIV INFECTION
     Route: 048
     Dates: start: 20080902
  7. TRUVADA [Suspect]
     Indication: HIV INFECTION
     Route: 048
     Dates: start: 20090902
  8. NERISONA [Concomitant]
     Dosage: DAILY DOSE: ADEQUATE DOSE ONCE OR TWICE A DAY
     Route: 061
     Dates: start: 20080818, end: 20081202
  9. ALLELOCK [Concomitant]
     Dosage: DRUG NAME ALSO REPORTED AS OLOPATADINE HYDROCHLORIDE
     Route: 048
     Dates: start: 20080818, end: 20081202
  10. FUNGIZONE [Concomitant]
     Route: 048
     Dates: start: 20080821, end: 20080904
  11. MEPIRIZOLE [Concomitant]
     Dosage: DRUG NAME REPORTED AS MEBRON
     Route: 048
     Dates: start: 20080822
  12. ZITHROMAX [Concomitant]
     Dosage: DRUG NAME ALSO REPORTED AS AZITHROMYCIN HYDRATE.
     Route: 048
     Dates: start: 20080904
  13. DIFLUCAN [Concomitant]
     Dosage: DRUG NAME ASLO REPORTED AS OTHER CHEMOTHERAPEUTICS
     Route: 065
     Dates: start: 20080910, end: 20080913
  14. GARENOXACIN MESILATE [Concomitant]
     Dosage: DRUG NAME REPORTED AS GENINAX(GARENOXACIN MESILATE HYDRATE)
     Route: 048
     Dates: start: 20080919, end: 20080924
  15. HIRUDOID [Concomitant]
     Dosage: DAILY DOSE: ADEQUATE DOSE ONCE OR TWICE A DAY
     Route: 061
     Dates: start: 20080818, end: 20081202

REACTIONS (5)
  - CYTOMEGALOVIRUS CHORIORETINITIS [None]
  - DIARRHOEA [None]
  - IMMUNE RECONSTITUTION SYNDROME [None]
  - INSOMNIA [None]
  - PNEUMOCYSTIS JIROVECI PNEUMONIA [None]
